FAERS Safety Report 9520528 (Version 1)
Quarter: 2013Q3

REPORT INFORMATION
  Report Type: Other
  Country: GB (occurrence: GB)
  Receive Date: 20130913
  Receipt Date: 20130913
  Transmission Date: 20140515
  Serious: Yes (Other)
  Sender: FDA-Public Use
  Company Number: GB-SUN PHARMACEUTICAL INDUSTRIES LTD-2013SUN04668

PATIENT
  Age: 37 Year
  Sex: Male
  Weight: 91 kg

DRUGS (3)
  1. OXALIPLATIN 5 MG/ML, CONCENTRATE FOR SOLUTION FOR INFUSION [Suspect]
     Indication: COLORECTAL CANCER METASTATIC
     Dosage: 260 MG, ONCE IN THREE WEEK
     Route: 042
     Dates: start: 20100524, end: 201207
  2. AVASTIN [Suspect]
     Indication: COLORECTAL CANCER METASTATIC
     Dosage: 600 MG, ONCE IN THREE WEEK
     Route: 042
     Dates: start: 20100524, end: 201207
  3. XELODA [Suspect]
     Indication: COLORECTAL CANCER METASTATIC
     Dosage: 2000 MG, ONCE IN THREE WEEK
     Route: 048
     Dates: start: 20100524, end: 201207

REACTIONS (4)
  - Hypersensitivity [Recovered/Resolved]
  - Peripheral sensory neuropathy [Recovered/Resolved]
  - Pain [Unknown]
  - Thrombophlebitis [Recovered/Resolved]
